FAERS Safety Report 19605291 (Version 2)
Quarter: 2021Q3

REPORT INFORMATION
  Report Type: Spontaneous
  Country: LT (occurrence: LT)
  Receive Date: 20210723
  Receipt Date: 20210727
  Transmission Date: 20211014
  Serious: Yes (Life-Threatening, Hospitalization, Other)
  Sender: FDA-Public Use
  Company Number: LT-GLAXOSMITHKLINE-LTCH2021047614

PATIENT
  Age: 42 Year
  Sex: Female

DRUGS (3)
  1. DICLOFENAC [Suspect]
     Active Substance: DICLOFENAC
     Indication: PRODUCT USED FOR UNKNOWN INDICATION
     Dosage: UNK (ABOUT 40 TABLETS OF QUILONUM RETARD 450 MG, DICLOFENAC AND ASPIRIN WERE INGESTED FOR SUICIDE AT
     Route: 065
     Dates: start: 20210707, end: 20210707
  2. QUILONUM RETARD [Suspect]
     Active Substance: LITHIUM CARBONATE
     Indication: PRODUCT USED FOR UNKNOWN INDICATION
     Dosage: UNK (ABOUT 40 TABLETS OF QUILONUM RETARD 450 MG, DICLOFENAC AND ASPIRIN WERE INGESTED FOR SUICIDE AT
     Route: 065
     Dates: start: 20210707, end: 20210707
  3. ASPIRIN. [Suspect]
     Active Substance: ASPIRIN
     Indication: PRODUCT USED FOR UNKNOWN INDICATION
     Dosage: UNK (ABOUT 40 TABLETS OF QUILONUM RETARD 450 MG, DICLOFENAC AND ASPIRIN WERE INGESTED FOR SUICIDE AT
     Route: 065
     Dates: start: 20210707, end: 20210707

REACTIONS (7)
  - Hyperhidrosis [Recovered/Resolved]
  - Suicide attempt [Recovered/Resolved]
  - Intentional overdose [Recovered/Resolved]
  - Headache [Recovered/Resolved]
  - Abdominal pain upper [Recovered/Resolved]
  - Nausea [Recovered/Resolved]
  - Asthenia [Recovered/Resolved]

NARRATIVE: CASE EVENT DATE: 20210707
